FAERS Safety Report 7986624-3 (Version None)
Quarter: 2011Q4

REPORT INFORMATION
  Report Type: 
  Country: None (occurrence: None)
  Receive Date: 20111216
  Receipt Date: 20110208
  Transmission Date: 20120403
  Serious: No
  Sender: FDA-Public Use
  Company Number: US-BRISTOL-MYERS SQUIBB COMPANY-15536444

PATIENT
  Age: 72 Year
  Sex: Female

DRUGS (4)
  1. BLOOD PRESSURE MEDICATION [Suspect]
  2. ALCOHOL [Suspect]
  3. LEXAPRO [Suspect]
  4. ABILIFY [Suspect]

REACTIONS (1)
  - TREMOR [None]
